FAERS Safety Report 8138242-4 (Version None)
Quarter: 2012Q1

REPORT INFORMATION
  Report Type: 
  Country: None (occurrence: None)
  Receive Date: 20120215
  Receipt Date: 20120207
  Transmission Date: 20120608
  Serious: Yes (Hospitalization)
  Sender: FDA-Public Use
  Company Number: US-US-EMD SERONO, INC.-7108638

PATIENT
  Sex: Female
  Weight: 78 kg

DRUGS (8)
  1. WELLBUTRIN [Concomitant]
     Indication: MULTIPLE SCLEROSIS
  2. GABAPENTIN [Concomitant]
     Indication: MULTIPLE SCLEROSIS
     Dates: start: 19950101
  3. CITALOPRAM HYDROBROMIDE [Concomitant]
     Indication: MULTIPLE SCLEROSIS
     Dates: start: 20070101
  4. REBIF [Suspect]
     Indication: MULTIPLE SCLEROSIS
     Route: 058
     Dates: start: 20020101
  5. WELLBUTRIN [Concomitant]
     Indication: DEPRESSION
     Dates: start: 20070101
  6. BACLOFEN [Concomitant]
     Indication: MULTIPLE SCLEROSIS
  7. AMPYRA [Concomitant]
     Indication: MULTIPLE SCLEROSIS
  8. REQUIP [Concomitant]
     Indication: MULTIPLE SCLEROSIS
     Dates: start: 20090101

REACTIONS (3)
  - FALL [None]
  - RIB FRACTURE [None]
  - CLAVICLE FRACTURE [None]
